FAERS Safety Report 4579506-0 (Version None)
Quarter: 2005Q1

REPORT INFORMATION
  Report Type: 
  Country: None (occurrence: None)
  Receive Date: 20050209
  Receipt Date: 20050201
  Transmission Date: 20050727
  Serious: Yes (Hospitalization, Disabling)
  Sender: FDA-Public Use
  Company Number: J081-002-001850

PATIENT
  Age: 42 Year
  Sex: Female
  Weight: 50.5 kg

DRUGS (17)
  1. ARICEPT [Suspect]
     Indication: DEMENTIA ALZHEIMER'S TYPE
     Dosage: 5 MG, 1 IN 1 D, ORAL
     Route: 048
     Dates: start: 20020401, end: 20040826
  2. ALDACTONE [Suspect]
     Indication: DIASTOLIC HYPERTENSION
     Dosage: 50 MG, 1 IN 1 D, ORAL
     Route: 048
     Dates: start: 20040715, end: 20040826
  3. MINIPRESS [Suspect]
     Indication: DIASTOLIC HYPERTENSION
     Dosage: 16 MG, 2 IN 1 D, ORAL
     Route: 048
     Dates: start: 20040601, end: 20040826
  4. ADECUT (DELAPRIL HYDROCHLORIDE) [Suspect]
     Indication: HYPERTENSION
     Dosage: 60 MG, 2 IN 1 D, ORAL
     Route: 048
     Dates: start: 20040417, end: 20040826
  5. BLOPRESS (CANDESARTAN CILEXETIL) [Suspect]
     Indication: DIASTOLIC HYPERTENSION
     Dosage: 4 MG, 1 IN 1 D, ORAL
     Route: 048
     Dates: start: 20040710, end: 20040826
  6. TIAPRIM (TIAPRIDE HYDROCHLORIDE) [Suspect]
     Indication: DEMENTIA ALZHEIMER'S TYPE
     Dosage: ORAL
     Route: 048
     Dates: start: 20020401, end: 20040826
  7. CLARITHROMYCIN [Suspect]
     Indication: BLISTER
     Dosage: ORAL
     Route: 048
     Dates: start: 20040818, end: 20040823
  8. LASIX [Suspect]
     Indication: DIASTOLIC HYPERTENSION
     Dosage: ORAL
     Route: 048
     Dates: start: 20040715, end: 20040721
  9. METOPROLOL TARTRATE [Suspect]
     Dosage: 180 MG, 3 IN 1 D,
     Dates: start: 20040611, end: 20040627
  10. PANTOSIN (PANTETHINE) [Concomitant]
  11. NITRAZEPAM [Concomitant]
  12. MAGNESIUM OXIDE (MAGNESIUM OXIDE) [Concomitant]
  13. AMLODIPINE BESYLATE [Concomitant]
  14. ... [Concomitant]
  15. ... [Concomitant]
  16. ... [Concomitant]
  17. ... [Concomitant]

REACTIONS (15)
  - BLISTER [None]
  - BODY TEMPERATURE DECREASED [None]
  - DEPRESSED LEVEL OF CONSCIOUSNESS [None]
  - DRUG INTERACTION [None]
  - DYSPHAGIA [None]
  - FEELING COLD [None]
  - HYPOXIA [None]
  - HYPOXIC ENCEPHALOPATHY [None]
  - NERVOUS SYSTEM DISORDER [None]
  - NEUROLEPTIC MALIGNANT SYNDROME [None]
  - OLIGURIA [None]
  - QUADRIPLEGIA [None]
  - RHABDOMYOLYSIS [None]
  - SHOCK [None]
  - SPEECH DISORDER [None]
